FAERS Safety Report 6347118-4 (Version None)
Quarter: 2009Q3

REPORT INFORMATION
  Report Type: 
  Country: None (occurrence: None)
  Receive Date: 20090910
  Receipt Date: 20090831
  Transmission Date: 20100115
  Serious: Yes (Hospitalization)
  Sender: FDA-Public Use
  Company Number: FR-PFIZER INC-2009261490

PATIENT
  Age: 62 Year

DRUGS (14)
  1. SOLU-MEDROL [Suspect]
     Indication: SQUAMOUS CELL CARCINOMA
     Dosage: 120 MG, 1X/DAY
     Route: 042
     Dates: start: 20081114, end: 20081114
  2. NAVELBINE [Suspect]
     Indication: SQUAMOUS CELL CARCINOMA
     Dosage: 60 MG, 1X/DAY
     Route: 042
     Dates: start: 20081114, end: 20081114
  3. CISPLATIN [Suspect]
     Indication: SQUAMOUS CELL CARCINOMA
     Dosage: 120 MG, 1X/DAY
     Dates: start: 20081114, end: 20081114
  4. EMEND [Suspect]
     Indication: SQUAMOUS CELL CARCINOMA
     Dosage: 125 MG, 1X/DAY
     Route: 048
     Dates: start: 20081114, end: 20081114
  5. EMEND [Suspect]
     Dosage: 80 MG, 1X/DAY
     Route: 048
     Dates: start: 20081115, end: 20081116
  6. ZOPHREN [Suspect]
     Indication: SQUAMOUS CELL CARCINOMA
     Dosage: 8 MG, 2X/DAY
     Route: 042
     Dates: start: 20081114, end: 20081114
  7. STAGID [Concomitant]
     Dosage: 700 MG
  8. JANUVIA [Concomitant]
     Dosage: 100 MG
  9. XANAX [Concomitant]
     Dosage: UNK
     Dates: start: 20081003, end: 20081113
  10. DILTIAZEM [Concomitant]
     Dosage: 300 MG, 1X/DAY
  11. HYTACAND [Concomitant]
     Dosage: 6 MG, 1X/DAY
  12. EZETROL [Concomitant]
     Dosage: 10 MG, 1X/DAY
  13. TAHOR [Concomitant]
     Dosage: 40 MG, 1X/DAY
  14. KARDEGIC [Concomitant]
     Dosage: 160 MG, 1X/DAY

REACTIONS (14)
  - BRADYCARDIA [None]
  - CHEST PAIN [None]
  - CIRCULATORY COLLAPSE [None]
  - CONDITION AGGRAVATED [None]
  - DIABETES MELLITUS [None]
  - HYPERKALAEMIA [None]
  - ILEUS PARALYTIC [None]
  - METABOLIC DISORDER [None]
  - NAUSEA [None]
  - NEUTROPENIA [None]
  - PANCREATITIS ACUTE [None]
  - RENAL FAILURE ACUTE [None]
  - SINUS ARRHYTHMIA [None]
  - TREATMENT NONCOMPLIANCE [None]
